FAERS Safety Report 18457330 (Version 1)
Quarter: 2020Q4

REPORT INFORMATION
  Report Type: Spontaneous
  Country: RO (occurrence: RO)
  Receive Date: 20201030
  Receipt Date: 20201030
  Transmission Date: 20210114
  Serious: Yes (Other)
  Sender: FDA-Public Use
  Company Number: RO-SA-2020SA302728

PATIENT

DRUGS (1)
  1. SULIQUA [Suspect]
     Active Substance: INSULIN GLARGINE\LIXISENATIDE
     Dosage: UNK
     Route: 065

REACTIONS (1)
  - Impaired gastric emptying [Unknown]
